FAERS Safety Report 11154302 (Version 1)
Quarter: 2015Q2

REPORT INFORMATION
  Report Type: Spontaneous
  Country: US (occurrence: US)
  Receive Date: 20150602
  Receipt Date: 20150602
  Transmission Date: 20150821
  Serious: No
  Sender: FDA-Public Use
  Company Number: US-NOVEN PHARMACEUTICALS, INC.-14US013178

PATIENT
  Age: 36 Year
  Sex: Female

DRUGS (1)
  1. DAYTRANA [Suspect]
     Active Substance: METHYLPHENIDATE
     Indication: ATTENTION DEFICIT/HYPERACTIVITY DISORDER
     Dosage: UNK
     Route: 062
     Dates: start: 2014

REACTIONS (7)
  - Application site pain [Not Recovered/Not Resolved]
  - Drug prescribing error [Unknown]
  - Drug administered at inappropriate site [Not Recovered/Not Resolved]
  - Therapeutic response unexpected [Unknown]
  - Application site irritation [Not Recovered/Not Resolved]
  - Off label use [Unknown]
  - Application site haemorrhage [Not Recovered/Not Resolved]

NARRATIVE: CASE EVENT DATE: 2014
